FAERS Safety Report 4469688-3 (Version None)
Quarter: 2004Q4

REPORT INFORMATION
  Report Type: 
  Country: None (occurrence: None)
  Receive Date: 20041008
  Receipt Date: 20041005
  Transmission Date: 20050328
  Serious: Yes (Life-Threatening, Hospitalization, Disabling)
  Sender: FDA-Public Use
  Company Number: US-MERCK-0410USA00531

PATIENT
  Age: 45 Year
  Sex: Male

DRUGS (2)
  1. VIOXX [Suspect]
     Indication: PAIN MANAGEMENT
     Route: 048
     Dates: start: 19990201, end: 20010301
  2. VIOXX [Suspect]
     Indication: INFLAMMATION
     Route: 048
     Dates: start: 19990201, end: 20010301

REACTIONS (3)
  - CARDIAC DISORDER [None]
  - HIATUS HERNIA [None]
  - OESOPHAGEAL DISORDER [None]
